FAERS Safety Report 18048849 (Version 1)
Quarter: 2020Q3

REPORT INFORMATION
  Report Type: Spontaneous
  Country: CA (occurrence: CA)
  Receive Date: 20200721
  Receipt Date: 20200721
  Transmission Date: 20201103
  Serious: Yes (Disabling)
  Sender: FDA-Public Use
  Company Number: CA-ACCORD-191383

PATIENT
  Age: 33 Year
  Sex: Female

DRUGS (4)
  1. HYDROXYCHLOROQUINE [Suspect]
     Active Substance: HYDROXYCHLOROQUINE
     Route: 065
  2. METHOTREXATE. [Suspect]
     Active Substance: METHOTREXATE
     Route: 065
  3. CELEBREX [Concomitant]
     Active Substance: CELECOXIB
     Route: 065
  4. XELJANZ [Concomitant]
     Active Substance: TOFACITINIB CITRATE
     Indication: RHEUMATOID ARTHRITIS
     Route: 048

REACTIONS (6)
  - Pain [Unknown]
  - Drug intolerance [Unknown]
  - Drug ineffective [Unknown]
  - Loss of personal independence in daily activities [Unknown]
  - Synovitis [Unknown]
  - Alanine aminotransferase increased [Unknown]
